FAERS Safety Report 9259016 (Version 1)
Quarter: 2013Q2

REPORT INFORMATION
  Report Type: Spontaneous
  Country: US (occurrence: US)
  Receive Date: 20130426
  Receipt Date: 20130426
  Transmission Date: 20140414
  Serious: No
  Sender: FDA-Public Use
  Company Number: US-009507513-1304USA015942

PATIENT
  Sex: Male

DRUGS (3)
  1. SAPHRIS [Suspect]
     Indication: BIPOLAR DISORDER
     Dosage: 5MG, TWICE A DAY
     Route: 060
  2. ZOLOFT [Concomitant]
  3. ABILIFY [Concomitant]

REACTIONS (1)
  - Somnambulism [Unknown]
